FAERS Safety Report 6956405-8 (Version None)
Quarter: 2010Q3

REPORT INFORMATION
  Report Type: 
  Country: None (occurrence: None)
  Receive Date: 20100830
  Receipt Date: 20100820
  Transmission Date: 20110219
  Serious: Yes (Hospitalization)
  Sender: FDA-Public Use
  Company Number: B0661477A

PATIENT
  Sex: Female

DRUGS (6)
  1. LAMICTAL [Suspect]
     Indication: EPILEPSY
     Dosage: 50MG PER DAY
     Route: 048
     Dates: start: 20100528, end: 20100607
  2. PL [Concomitant]
     Indication: NASOPHARYNGITIS
     Dosage: 3G PER DAY
     Route: 048
     Dates: start: 20100527, end: 20100529
  3. LOXONIN [Concomitant]
     Indication: NASOPHARYNGITIS
     Route: 048
     Dates: start: 20100527, end: 20100602
  4. NAUZELIN [Concomitant]
     Indication: NAUSEA
     Route: 048
     Dates: start: 20100603
  5. CALONAL [Concomitant]
     Indication: HEADACHE
     Route: 048
     Dates: start: 20100603
  6. PERIACTIN [Concomitant]
     Indication: NASOPHARYNGITIS
     Dosage: 12MG PER DAY
     Route: 048
     Dates: start: 20100603, end: 20100607

REACTIONS (6)
  - DRUG ERUPTION [None]
  - HEPATIC FUNCTION ABNORMAL [None]
  - LYMPHADENOPATHY [None]
  - MALAISE [None]
  - PYREXIA [None]
  - SKIN DISORDER [None]
